FAERS Safety Report 13877420 (Version 2)
Quarter: 2017Q3

REPORT INFORMATION
  Report Type: Spontaneous
  Country: BR (occurrence: BR)
  Receive Date: 20170817
  Receipt Date: 20170826
  Transmission Date: 20171127
  Serious: Yes (Hospitalization, Other)
  Sender: FDA-Public Use
  Company Number: BR-AMGEN-BRASP2017124587

PATIENT
  Sex: Male

DRUGS (6)
  1. METOTREXATE [Concomitant]
     Active Substance: METHOTREXATE SODIUM
     Dosage: UNK
  2. ENBREL [Suspect]
     Active Substance: ETANERCEPT
     Indication: ANKYLOSING SPONDYLITIS
     Dosage: 50 MG, WEEKLY
     Route: 065
  3. CHITOSAN [Suspect]
     Active Substance: CHITOSAN
     Indication: ANKYLOSING SPONDYLITIS
     Dosage: UNK
     Route: 065
  4. INDAPAMIDA [Concomitant]
     Active Substance: INDAPAMIDE
     Dosage: UNK
  5. FOLIC ACID. [Concomitant]
     Active Substance: FOLIC ACID
     Dosage: UNK
  6. BENICAR [Concomitant]
     Active Substance: OLMESARTAN MEDOXOMIL
     Dosage: UNK

REACTIONS (4)
  - Hypoglycaemia [Not Recovered/Not Resolved]
  - Arrhythmia [Recovered/Resolved]
  - Drug effect incomplete [Not Recovered/Not Resolved]
  - Diabetes mellitus [Not Recovered/Not Resolved]
